FAERS Safety Report 8547340-2 (Version None)
Quarter: 2012Q3

REPORT INFORMATION
  Report Type: 
  Country: None (occurrence: None)
  Receive Date: 20120727
  Receipt Date: 20120320
  Transmission Date: 20120928
  Serious: No
  Sender: FDA-Public Use
  Company Number: US-ASTRAZENECA-2012SE19167

PATIENT
  Age: 47 Year
  Sex: Female

DRUGS (2)
  1. BLOOD PRESSURE MEDICATION [Concomitant]
  2. SEROQUEL [Suspect]
     Route: 048

REACTIONS (3)
  - THYROID DISORDER [None]
  - HYPERTENSION [None]
  - DRUG DOSE OMISSION [None]
